FAERS Safety Report 12957810 (Version 1)
Quarter: 2016Q4

REPORT INFORMATION
  Report Type: Spontaneous
  Country: US (occurrence: US)
  Receive Date: 20161118
  Receipt Date: 20161118
  Transmission Date: 20170207
  Serious: Yes (Other)
  Sender: FDA-Public Use
  Company Number: US-BAUSCH-BL-2016-027786

PATIENT
  Age: 81 Year
  Sex: Female

DRUGS (3)
  1. SYSTANE (HYPROMELLOSE 2910 (4000 MPA.S)) [Concomitant]
     Active Substance: HYPROMELLOSE 2910 (4000 MPA.S)
     Indication: DRY EYE
     Dosage: AT BEDTIME, IN LEFT EYE
     Route: 047
     Dates: start: 20161109
  2. MURO 128 [Suspect]
     Active Substance: SODIUM CHLORIDE
     Indication: DRY EYE
     Route: 047
     Dates: start: 20161109
  3. MURO 128 [Suspect]
     Active Substance: SODIUM CHLORIDE
     Route: 047
     Dates: end: 20161113

REACTIONS (3)
  - Eye irritation [Unknown]
  - Eye injury [Unknown]
  - Blindness transient [Recovered/Resolved]

NARRATIVE: CASE EVENT DATE: 20161109
